FAERS Safety Report 8114839-2 (Version None)
Quarter: 2012Q1

REPORT INFORMATION
  Report Type: 
  Country: None (occurrence: None)
  Receive Date: 20120206
  Receipt Date: 20120123
  Transmission Date: 20120608
  Serious: Yes (Hospitalization)
  Sender: FDA-Public Use
  Company Number: NL-JNJFOC-20111105330

PATIENT
  Sex: Male
  Weight: 36 kg

DRUGS (2)
  1. REMICADE [Suspect]
     Indication: CROHN'S DISEASE
     Route: 042
     Dates: start: 20110513, end: 20111101
  2. ANTIBIOTICS [Concomitant]
     Indication: CROHN'S DISEASE

REACTIONS (3)
  - WEIGHT DECREASED [None]
  - CROHN'S DISEASE [None]
  - NAUSEA [None]
